FAERS Safety Report 4817736-0 (Version None)
Quarter: 2005Q3

REPORT INFORMATION
  Report Type: 
  Country: None (occurrence: None)
  Receive Date: 20050929
  Receipt Date: 20050728
  Transmission Date: 20060218
  Serious: No
  Sender: FDA-Public Use
  Company Number: 05P-163-0306949-00

PATIENT
  Age: 55 Year
  Sex: Female
  Weight: 63.5036 kg

DRUGS (8)
  1. HUMIRA [Suspect]
     Indication: RHEUMATOID ARTHRITIS
     Dosage: 40 MG, 1 IN 2 WK, SUBCUTANEOUS
     Route: 058
     Dates: start: 20050701
  2. METHOTREXATE [Concomitant]
  3. CLONIDINE [Concomitant]
  4. LOVASTATIN [Concomitant]
  5. MELOXICAM [Concomitant]
  6. ATENOLOL [Concomitant]
  7. LOSARTAN POTASSIUM [Concomitant]
  8. FOLIC ACID [Concomitant]

REACTIONS (2)
  - DIZZINESS [None]
  - NAUSEA [None]
